FAERS Safety Report 10338169 (Version 1)
Quarter: 2014Q3

REPORT INFORMATION
  Report Type: Spontaneous
  Country: US (occurrence: None)
  Receive Date: 20140723
  Receipt Date: 20140723
  Transmission Date: 20150326
  Serious: Yes (Hospitalization)
  Sender: FDA-Public Use
  Company Number: None

PATIENT
  Age: 62 Year
  Sex: Female

DRUGS (1)
  1. REGORAFENIB [Suspect]
     Active Substance: REGORAFENIB

REACTIONS (6)
  - Rash [None]
  - Hyponatraemia [None]
  - Rash maculo-papular [None]
  - Pyrexia [None]
  - Oral mucosal blistering [None]
  - Dehydration [None]

NARRATIVE: CASE EVENT DATE: 20140110
